FAERS Safety Report 21733024 (Version 1)
Quarter: 2022Q4

REPORT INFORMATION
  Report Type: Spontaneous
  Country: US (occurrence: US)
  Receive Date: 20221215
  Receipt Date: 20221215
  Transmission Date: 20230112
  Serious: No
  Sender: FDA-Public Use
  Company Number: US-ELI_LILLY_AND_COMPANY-US202212006443

PATIENT
  Sex: Female

DRUGS (1)
  1. REYVOW [Suspect]
     Active Substance: LASMIDITAN
     Indication: Product used for unknown indication
     Dosage: 50 MG, SINGLE
     Route: 065

REACTIONS (5)
  - Dizziness [Unknown]
  - Disorientation [Unknown]
  - Hallucination, visual [Unknown]
  - Paraesthesia oral [Unknown]
  - Paraesthesia [Unknown]
